FAERS Safety Report 8906788 (Version 2)
Quarter: 2012Q4

REPORT INFORMATION
  Report Type: 
  Country: FR (occurrence: FR)
  Receive Date: 20121114
  Receipt Date: 20121226
  Transmission Date: 20130627
  Serious: Yes (Hospitalization, Other)
  Sender: FDA-Public Use
  Company Number: FR-PFIZER INC-2012279733

PATIENT
  Age: 83 Year
  Sex: Male

DRUGS (2)
  1. SUTENT [Suspect]
     Indication: RENAL CANCER
     Dosage: 25 mg, 1x/day
     Dates: start: 20121015, end: 20121030
  2. SUTENT [Suspect]
     Indication: LYMPHADENOPATHY

REACTIONS (2)
  - Pulmonary embolism [Unknown]
  - Phlebitis [Unknown]
